FAERS Safety Report 9765390 (Version 1)
Quarter: 2013Q4

REPORT INFORMATION
  Report Type: Spontaneous
  Country: US (occurrence: None)
  Receive Date: 20131216
  Receipt Date: 20131216
  Transmission Date: 20140711
  Serious: Yes (Other)
  Sender: FDA-Public Use
  Company Number: None

PATIENT
  Age: 53 Year
  Sex: Female
  Weight: 68.95 kg

DRUGS (1)
  1. VERAPAMIL HCL [Suspect]
     Indication: HYPERTENSION
     Dosage: 1/2 TAB X 8 DAYS, THEN 1 PER D, ONCE DAILY, TAKEN BY MOUTH
     Dates: start: 20130215, end: 20130305

REACTIONS (28)
  - Headache [None]
  - Migraine [None]
  - Blood glucose decreased [None]
  - Chest pain [None]
  - Chest discomfort [None]
  - Arthralgia [None]
  - Arthralgia [None]
  - Asthenia [None]
  - Pain in extremity [None]
  - Oropharyngeal pain [None]
  - Feeling jittery [None]
  - Pain in extremity [None]
  - Dyspnoea [None]
  - Hypoaesthesia [None]
  - Paraesthesia [None]
  - Abdominal distension [None]
  - Abdominal pain upper [None]
  - Dizziness [None]
  - Throat tightness [None]
  - Lymphadenopathy [None]
  - Nausea [None]
  - Vomiting [None]
  - Dry mouth [None]
  - Speech disorder [None]
  - Aura [None]
  - Nasopharyngitis [None]
  - Muscular weakness [None]
  - Motor dysfunction [None]
